FAERS Safety Report 8290906-8 (Version None)
Quarter: 2012Q2

REPORT INFORMATION
  Report Type: 
  Country: None (occurrence: None)
  Receive Date: 20120417
  Receipt Date: 20110621
  Transmission Date: 20120825
  Serious: No
  Sender: FDA-Public Use
  Company Number: US-ASTRAZENECA-2011SE37793

PATIENT
  Age: 12356 Day
  Sex: Female
  Weight: 61.2 kg

DRUGS (1)
  1. NEXIUM [Suspect]
     Route: 048
     Dates: start: 20110614, end: 20110619

REACTIONS (4)
  - HEADACHE [None]
  - NAUSEA [None]
  - DIARRHOEA [None]
  - MUSCLE SPASMS [None]
